FAERS Safety Report 19875540 (Version 1)
Quarter: 2021Q3

REPORT INFORMATION
  Report Type: Spontaneous
  Country: US (occurrence: US)
  Receive Date: 20210924
  Receipt Date: 20210924
  Transmission Date: 20211014
  Serious: Yes (Hospitalization, Other)
  Sender: FDA-Public Use
  Company Number: US-HIKMA PHARMACEUTICALS USA INC.-US-H14001-21-04145

PATIENT
  Age: 11 Year
  Sex: Male

DRUGS (18)
  1. IRINOTECAN [Suspect]
     Active Substance: IRINOTECAN
     Indication: RHABDOMYOSARCOMA
     Dosage: UNKNOWN
     Route: 065
  2. VINORELBINE [Suspect]
     Active Substance: VINORELBINE TARTRATE
     Indication: RHABDOMYOSARCOMA
     Dosage: UNKNOWN
     Route: 065
  3. VITAMIN B2 [Concomitant]
     Active Substance: RIBOFLAVIN
     Indication: PRODUCT USED FOR UNKNOWN INDICATION
     Dosage: UNKNOWN
     Route: 065
  4. VINCRISTINE [Suspect]
     Active Substance: VINCRISTINE
     Indication: RHABDOMYOSARCOMA
     Dosage: UNKNOWN
     Route: 065
  5. PAZOPANIB [Suspect]
     Active Substance: PAZOPANIB
     Indication: RHABDOMYOSARCOMA
     Dosage: UNKNOWN
     Route: 065
  6. PALBOCICLIB [Suspect]
     Active Substance: PALBOCICLIB
     Indication: RHABDOMYOSARCOMA
     Dosage: UNKNOWN
     Route: 065
  7. CBD [Concomitant]
     Active Substance: CANNABIDIOL
     Indication: ANXIETY
  8. GLUTAMINE [Concomitant]
     Active Substance: GLUTAMINE
     Indication: PRODUCT USED FOR UNKNOWN INDICATION
     Dosage: UNKNOWN
     Route: 065
  9. TEMSIROLIMUS. [Suspect]
     Active Substance: TEMSIROLIMUS
     Indication: RHABDOMYOSARCOMA
     Dosage: UNKNOWN
     Route: 065
  10. PREXASERTIB [Suspect]
     Active Substance: PREXASERTIB
     Indication: RHABDOMYOSARCOMA
     Dosage: UNKNOWN
     Route: 065
  11. VORINOSTAT [Suspect]
     Active Substance: VORINOSTAT
     Indication: RHABDOMYOSARCOMA
     Dosage: UNKNOWN
     Route: 065
  12. THC [Concomitant]
     Active Substance: DRONABINOL
     Indication: PAIN
     Dosage: UNKNOWN
     Route: 065
  13. ADRIAMYCIN [Suspect]
     Active Substance: DOXORUBICIN HYDROCHLORIDE
     Indication: RHABDOMYOSARCOMA
     Dosage: UNKNOWN
     Route: 065
  14. CLINDAMYCIN. [Suspect]
     Active Substance: CLINDAMYCIN
     Indication: RHABDOMYOSARCOMA
     Dosage: UNKNOWN
     Route: 065
  15. CBD [Concomitant]
     Active Substance: CANNABIDIOL
     Indication: PAIN
     Dosage: UNKNOWN
     Route: 065
  16. CYCLOPHOSPHAMIDE. [Suspect]
     Active Substance: CYCLOPHOSPHAMIDE
     Indication: RHABDOMYOSARCOMA
     Dosage: UNKNOWN
     Route: 065
  17. TEMOZOLOMIDE. [Suspect]
     Active Substance: TEMOZOLOMIDE
     Indication: RHABDOMYOSARCOMA
     Dosage: UNKNOWN
     Route: 065
  18. THC [Concomitant]
     Active Substance: DRONABINOL
     Indication: ANXIETY

REACTIONS (4)
  - Mucosal inflammation [Unknown]
  - Clostridium difficile infection [Unknown]
  - Headache [Unknown]
  - Neuropathy peripheral [Unknown]
